FAERS Safety Report 5647306-6 (Version None)
Quarter: 2008Q1

REPORT INFORMATION
  Report Type: 
  Country: None (occurrence: None)
  Receive Date: 20080303
  Receipt Date: 20080222
  Transmission Date: 20080703
  Serious: Yes (Hospitalization)
  Sender: FDA-Public Use
  Company Number: FR-ABBOTT-08P-056-0439453-00

PATIENT
  Sex: Male

DRUGS (8)
  1. DEPAKENE [Suspect]
     Indication: EPILEPSY
     Route: 048
  2. SEROPLEX FILM-COATED TABLETS [Suspect]
     Indication: DEPRESSION
     Route: 048
     Dates: start: 20070415, end: 20070509
  3. FLECAINIDE ACETATE [Suspect]
     Indication: ATRIAL FIBRILLATION
     Route: 048
     Dates: end: 20070501
  4. FLECAINIDE ACETATE [Suspect]
     Route: 048
     Dates: start: 20070501
  5. CYCLOSPORINE [Suspect]
     Indication: RENAL TRANSPLANT
     Route: 048
  6. PREDNISONE TAB [Suspect]
     Indication: RENAL TRANSPLANT
     Route: 048
  7. CEFOTAXIME SODIUM [Concomitant]
     Indication: DRUG USE FOR UNKNOWN INDICATION
     Dates: end: 20070509
  8. CEFOTAXIME SODIUM [Concomitant]
     Dates: start: 20070510

REACTIONS (3)
  - ENCEPHALOPATHY [None]
  - RENAL FAILURE [None]
  - SEPSIS [None]
